FAERS Safety Report 11194374 (Version 3)
Quarter: 2015Q3

REPORT INFORMATION
  Report Type: Report from Study
  Country: RO (occurrence: RO)
  Receive Date: 20150616
  Receipt Date: 20150709
  Transmission Date: 20151125
  Serious: Yes (Death, Other)
  Sender: FDA-Public Use
  Company Number: RO-ABBVIE-15P-135-1408403-00

PATIENT
  Age: 70 Year
  Sex: Male

DRUGS (3)
  1. SEROQUEL [Suspect]
     Active Substance: QUETIAPINE FUMARATE
     Indication: PRODUCT USED FOR UNKNOWN INDICATION
     Dosage: 400 MG ADMINISTERED 07 JUL 2015
     Route: 065
  2. DUODOPA [Suspect]
     Active Substance: CARBIDOPA\LEVODOPA
     Indication: PARKINSON^S DISEASE
     Dosage: 16/24 MD: 11 ML, CR 5 ML/H, ED 2.5 ML.
     Route: 050
     Dates: start: 20150217
  3. LOKREN [Concomitant]
     Active Substance: BETAXOLOL HYDROCHLORIDE
     Indication: ESSENTIAL HYPERTENSION
     Dosage: 1/2-0-0

REACTIONS (12)
  - Memory impairment [Unknown]
  - Speech disorder [Unknown]
  - Sudden death [Fatal]
  - Faecal incontinence [Unknown]
  - Aggression [Unknown]
  - Psychotic disorder [Unknown]
  - Dyspnoea [Unknown]
  - Urinary incontinence [Unknown]
  - Concussion [Fatal]
  - Agitation [Unknown]
  - Sexual dysfunction [Unknown]
  - Abnormal behaviour [Unknown]

NARRATIVE: CASE EVENT DATE: 20150610
